FAERS Safety Report 10962571 (Version 2)
Quarter: 2017Q2

REPORT INFORMATION
  Report Type: Report from Study
  Country: None (occurrence: BR)
  Receive Date: 20150327
  Receipt Date: 20170512
  Transmission Date: 20170829
  Serious: Yes (Other)
  Sender: FDA-Public Use
  Company Number: BR-ABBVIE-15K-020-1364841-00

PATIENT
  Sex: Female
  Weight: 69 kg

DRUGS (20)
  1. HUMIRA [Suspect]
     Active Substance: ADALIMUMAB
     Indication: RHEUMATOID ARTHRITIS
     Route: 058
     Dates: start: 20101010
  2. METICORTEN [Concomitant]
     Active Substance: PREDNISONE
     Indication: ARTHRITIS
     Route: 048
     Dates: start: 1990
  3. BENICAR HCT [Concomitant]
     Active Substance: HYDROCHLOROTHIAZIDE\OLMESARTAN MEDOXOMIL
     Indication: HYPERTENSION
  4. ACETYLSALICYLIC ACID (SOMALGIN CARDIO) [Concomitant]
     Indication: CARDIAC DISORDER
     Route: 048
     Dates: start: 2014
  5. OMEGA 3 [Concomitant]
     Active Substance: OMEGA-3 FATTY ACIDS
     Indication: SJOGREN^S SYNDROME
     Route: 048
     Dates: start: 1995
  6. CHONDROITIN SULFATE W/GLUCOSAMINE [Concomitant]
     Indication: ARTHROPATHY
  7. SERTRALINE [Concomitant]
     Active Substance: SERTRALINE HYDROCHLORIDE
     Indication: DEPRESSION
     Route: 048
     Dates: start: 2012
  8. METHOTREXATE. [Concomitant]
     Active Substance: METHOTREXATE
     Indication: SJOGREN^S SYNDROME
  9. CHONDROITIN SULFATE W/GLUCOSAMINE [Concomitant]
     Indication: ARTHROPATHY
     Dosage: 1 SACHET DISSOLVELD IN HALF GLASS OF WATER
     Route: 048
     Dates: start: 2012
  10. DOMPERIDONE [Concomitant]
     Active Substance: DOMPERIDONE
     Indication: GASTROINTESTINAL DISORDER
  11. PHARMATON [Concomitant]
     Active Substance: MINERALS\VITAMINS
     Indication: FATIGUE
     Route: 048
  12. ENDOFOLIN [Concomitant]
     Active Substance: FOLIC ACID
     Indication: ANAEMIA PROPHYLAXIS
     Route: 048
     Dates: start: 1990
  13. PANTOPRAZOLE [Concomitant]
     Active Substance: PANTOPRAZOLE
     Indication: GASTRIC DISORDER
     Route: 048
     Dates: start: 1997
  14. METHOTREXATE. [Concomitant]
     Active Substance: METHOTREXATE
     Indication: ARTHRITIS
     Route: 048
     Dates: start: 1990
  15. BENICAR HCT [Concomitant]
     Active Substance: HYDROCHLOROTHIAZIDE\OLMESARTAN MEDOXOMIL
     Indication: BLOOD PRESSURE ABNORMAL
     Dosage: FORM STRENGTH: 20 MG/12,5 MG
     Route: 048
     Dates: start: 1990
  16. PRAZOL [Concomitant]
     Indication: GASTRIC DISORDER
     Route: 048
     Dates: start: 20140814
  17. MOBILITY [Concomitant]
     Indication: SKIN DISORDER
     Route: 048
     Dates: start: 2013
  18. PANTOPRAZOLE [Concomitant]
     Active Substance: PANTOPRAZOLE
     Indication: PROPHYLAXIS
  19. VITAMIN D [Concomitant]
     Active Substance: CHOLECALCIFEROL
     Indication: VITAMIN D DEFICIENCY
     Dosage: 1 TABLET DAILY, TWICE A YEAR DURING UNSPECIFIED PERIOD
     Route: 048
  20. DOMPERIDONE [Concomitant]
     Active Substance: DOMPERIDONE
     Indication: GASTRIC DISORDER
     Route: 048
     Dates: start: 2013

REACTIONS (15)
  - Anaemia [Not Recovered/Not Resolved]
  - Chest pain [Recovered/Resolved]
  - Neuroma [Not Recovered/Not Resolved]
  - Blood cholesterol abnormal [Unknown]
  - Fatigue [Not Recovered/Not Resolved]
  - Arterial occlusive disease [Recovered/Resolved]
  - Pain in extremity [Recovered/Resolved]
  - Joint swelling [Not Recovered/Not Resolved]
  - Dyspnoea [Recovered/Resolved]
  - Gastrointestinal disorder [Unknown]
  - Depression [Unknown]
  - Arthralgia [Not Recovered/Not Resolved]
  - Cardiac disorder [Unknown]
  - Apathy [Not Recovered/Not Resolved]
  - Pain in extremity [Not Recovered/Not Resolved]

NARRATIVE: CASE EVENT DATE: 2013
